FAERS Safety Report 8465373-1 (Version None)
Quarter: 2012Q2

REPORT INFORMATION
  Report Type: 
  Country: None (occurrence: None)
  Receive Date: 20120323
  Receipt Date: 20110922
  Transmission Date: 20120825
  Serious: Yes (Other)
  Sender: FDA-Public Use
  Company Number: 163-21880-11093275

PATIENT
  Age: 67 Year
  Sex: Female
  Weight: 56.7 kg

DRUGS (4)
  1. REVLIMID [Suspect]
     Indication: MULTIPLE MYELOMA
     Dosage: 25 MG, 1 IN 1 D, PO 5 MG, HS FOR 14 DAYS ON THEN 7 DAYS OFF, PO
     Route: 048
     Dates: start: 20100225
  2. REVLIMID [Suspect]
     Indication: ANAEMIA
     Dosage: 25 MG, 1 IN 1 D, PO 5 MG, HS FOR 14 DAYS ON THEN 7 DAYS OFF, PO
     Route: 048
     Dates: start: 20100225
  3. REVLIMID [Suspect]
     Indication: MULTIPLE MYELOMA
     Dosage: 25 MG, 1 IN 1 D, PO 5 MG, HS FOR 14 DAYS ON THEN 7 DAYS OFF, PO
     Route: 048
     Dates: start: 20100801
  4. REVLIMID [Suspect]
     Indication: ANAEMIA
     Dosage: 25 MG, 1 IN 1 D, PO 5 MG, HS FOR 14 DAYS ON THEN 7 DAYS OFF, PO
     Route: 048
     Dates: start: 20100801

REACTIONS (2)
  - CONTUSION [None]
  - HAEMORRHAGE [None]
